FAERS Safety Report 25601049 (Version 1)
Quarter: 2025Q3

REPORT INFORMATION
  Report Type: Spontaneous
  Country: US (occurrence: US)
  Receive Date: 20250724
  Receipt Date: 20250724
  Transmission Date: 20251021
  Serious: Yes (Death)
  Sender: MISSION PHARMACAL COMPANY
  Company Number: US-Mission Pharmacal Company-2181101

PATIENT
  Age: 67 Year
  Sex: Female

DRUGS (2)
  1. URIBEL [Suspect]
     Active Substance: HYOSCYAMINE SULFATE\METHENAMINE\METHYLENE BLUE\PHENYL SALICYLATE\SODIUM PHOSPHATE, MONOBASIC, MONOHY
     Indication: Urinary tract infection
  2. LISINOPRIL [Concomitant]
     Active Substance: LISINOPRIL

REACTIONS (12)
  - Respiratory distress [Fatal]
  - Polyuria [Fatal]
  - Dyspnoea [Fatal]
  - Somnolence [Fatal]
  - Dysarthria [Fatal]
  - Abdominal pain [Fatal]
  - Dizziness [Fatal]
  - Headache [Fatal]
  - Confusional state [Fatal]
  - Sepsis [Fatal]
  - Vomiting [Fatal]
  - Nausea [Fatal]
